FAERS Safety Report 8042013-7 (Version None)
Quarter: 2012Q1

REPORT INFORMATION
  Report Type: 
  Country: None (occurrence: None)
  Receive Date: 20120112
  Receipt Date: 20120109
  Transmission Date: 20120608
  Serious: Yes (Hospitalization, Other)
  Sender: FDA-Public Use
  Company Number: CA-BAYER-2011-111571

PATIENT
  Age: 22 Year
  Sex: Female
  Weight: 55 kg

DRUGS (5)
  1. VITAMIN D [Concomitant]
  2. YASMIN [Suspect]
     Indication: ACNE
  3. CALCIUM CARBONATE [Concomitant]
  4. ONE A DAY WEIGHTSMART [Concomitant]
  5. YASMIN [Suspect]
     Indication: CONTRACEPTION
     Dosage: 1 DF, QD
     Route: 048
     Dates: start: 20090915, end: 20110601

REACTIONS (12)
  - ANXIETY [None]
  - ABDOMINAL DISTENSION [None]
  - ABDOMINAL DISCOMFORT [None]
  - FUNGAL INFECTION [None]
  - PANIC ATTACK [None]
  - FLATULENCE [None]
  - DYSPEPSIA [None]
  - DIARRHOEA [None]
  - POLYURIA [None]
  - PANIC DISORDER WITH AGORAPHOBIA [None]
  - CONSTIPATION [None]
  - MICTURITION URGENCY [None]
